FAERS Safety Report 9131816 (Version 1)
Quarter: 2013Q1

REPORT INFORMATION
  Report Type: Report from Study
  Country: US (occurrence: US)
  Receive Date: 20130301
  Receipt Date: 20130301
  Transmission Date: 20140127
  Serious: No
  Sender: FDA-Public Use
  Company Number: US-MYLANLABS-2012S1015467

PATIENT
  Age: 13 Year
  Sex: Female
  Weight: 83.92 kg

DRUGS (2)
  1. AMNESTEEM CAPSULES [Suspect]
     Indication: ACNE
     Route: 048
     Dates: start: 20120411, end: 20120714
  2. CLARAVIS [Suspect]
     Indication: ACNE
     Route: 048
     Dates: start: 2012, end: 2012

REACTIONS (2)
  - Aspartate aminotransferase increased [Recovered/Resolved]
  - Headache [Recovered/Resolved]
